FAERS Safety Report 7644280-8 (Version None)
Quarter: 2011Q3

REPORT INFORMATION
  Report Type: 
  Country: None (occurrence: None)
  Receive Date: 20110728
  Receipt Date: 20110728
  Transmission Date: 20111222
  Serious: Yes (Hospitalization)
  Sender: FDA-Public Use
  Company Number: None

PATIENT
  Age: 74 Year
  Sex: Female
  Weight: 97 kg

DRUGS (9)
  1. ASPIRIN [Suspect]
     Dosage: 81 MG DAILY ORAL
     Route: 048
  2. INSULIN DETEMIR [Concomitant]
  3. NIFEDIPINE [Concomitant]
  4. ASPIRIN [Concomitant]
  5. PRADAXA [Suspect]
     Indication: ATRIAL FIBRILLATION
     Dosage: 150MG BID ORAL
     Route: 048
     Dates: start: 20110520, end: 20110522
  6. PIOGLITAZONE [Concomitant]
  7. CEPHALEXIN [Concomitant]
  8. ESTROGENS [Concomitant]
  9. METOPROLOL SUCCINATE EXTENDED RELEASE [Concomitant]

REACTIONS (4)
  - GASTROINTESTINAL EROSION [None]
  - JEJUNAL ULCER [None]
  - GASTROINTESTINAL HAEMORRHAGE [None]
  - DUODENAL ULCER [None]
